FAERS Safety Report 9264414 (Version 1)
Quarter: 2013Q2

REPORT INFORMATION
  Report Type: Spontaneous
  Country: JP (occurrence: JP)
  Receive Date: 20130430
  Receipt Date: 20130430
  Transmission Date: 20140414
  Serious: Yes (Other)
  Sender: FDA-Public Use
  Company Number: JP-ALLERGAN-1306054US

PATIENT
  Age: 73 Year
  Sex: Male

DRUGS (2)
  1. BOTOX [Suspect]
     Indication: MUSCLE SPASMS
     Dosage: 350 UNITS, SINGLE
     Route: 030
     Dates: start: 20130221, end: 20130221
  2. BOTOX [Suspect]
     Dosage: UNK UNK, SINGLE
     Route: 030

REACTIONS (1)
  - Cerebral infarction [Recovering/Resolving]
